FAERS Safety Report 25100166 (Version 1)
Quarter: 2025Q1

REPORT INFORMATION
  Report Type: Report from Study
  Country: US (occurrence: US)
  Receive Date: 20250320
  Receipt Date: 20250320
  Transmission Date: 20250409
  Serious: Yes (Hospitalization, Other)
  Sender: Pyros Pharmaceuticals
  Company Number: US-PYROS PHARMACEUTICALS, INC-20250300681

PATIENT
  Age: 1 Year
  Sex: Male
  Weight: 11.1 kg

DRUGS (8)
  1. VIGAFYDE [Suspect]
     Active Substance: VIGABATRIN
     Indication: Infantile spasms
     Route: 065
     Dates: end: 202503
  2. VIGAFYDE [Suspect]
     Active Substance: VIGABATRIN
     Route: 065
     Dates: start: 20250310
  3. FELBAMATE [Concomitant]
     Active Substance: FELBAMATE
     Indication: Product used for unknown indication
     Route: 065
  4. EPIDIOLEX [Concomitant]
     Active Substance: CANNABIDIOL
     Indication: Product used for unknown indication
     Route: 065
  5. BRIVIACT [Concomitant]
     Active Substance: BRIVARACETAM
     Indication: Product used for unknown indication
     Route: 065
  6. SYMPAZAN [Concomitant]
     Active Substance: CLOBAZAM
     Indication: Product used for unknown indication
     Route: 065
  7. SIMETHICONE (DIMETHICONE) [Concomitant]
     Active Substance: DIMETHICONE
     Indication: Product used for unknown indication
     Route: 065
  8. ALBUTEROL [Concomitant]
     Active Substance: ALBUTEROL
     Indication: Product used for unknown indication
     Route: 065

REACTIONS (2)
  - Pneumonia aspiration [Recovered/Resolved]
  - Temperature regulation disorder [Recovered/Resolved]

NARRATIVE: CASE EVENT DATE: 20250220
